FAERS Safety Report 6202791-6 (Version None)
Quarter: 2009Q2

REPORT INFORMATION
  Report Type: 
  Country: None (occurrence: None)
  Receive Date: 20090526
  Receipt Date: 20090119
  Transmission Date: 20091009
  Serious: Yes (Hospitalization)
  Sender: FDA-Public Use
  Company Number: IN-PFIZER INC-2007049384

PATIENT
  Age: 76 Year

DRUGS (11)
  1. BLINDED *PLACEBO [Suspect]
     Dosage: QD
     Route: 048
     Dates: start: 20061012, end: 20070612
  2. BLINDED EPLERENONE [Suspect]
     Dosage: QD
     Route: 048
     Dates: start: 20061012, end: 20070612
  3. BLINDED *PLACEBO [Suspect]
     Dosage: QD
     Route: 048
     Dates: start: 20070614
  4. BLINDED EPLERENONE [Suspect]
     Dosage: QD
     Route: 048
     Dates: start: 20070614
  5. DIGOXIN [Concomitant]
     Route: 048
     Dates: start: 20070528
  6. DERIPHYLLIN [Concomitant]
     Route: 048
     Dates: start: 20070525
  7. NITRAVET [Concomitant]
     Route: 048
     Dates: start: 20070525, end: 20070613
  8. PENTOXIFYLLINE [Concomitant]
     Route: 048
     Dates: start: 20060615
  9. OMEPRAZOL [Concomitant]
     Dates: start: 20060615
  10. GLIMEPIRIDE [Concomitant]
     Route: 048
     Dates: start: 20070416, end: 20070613
  11. LASIX [Concomitant]
     Dates: start: 20070530

REACTIONS (2)
  - LEFT VENTRICULAR FAILURE [None]
  - LOWER RESPIRATORY TRACT INFECTION [None]
